FAERS Safety Report 21899089 (Version 4)
Quarter: 2023Q1

REPORT INFORMATION
  Report Type: Report from Study
  Country: US (occurrence: US)
  Receive Date: 20230123
  Receipt Date: 20230301
  Transmission Date: 20230417
  Serious: Yes (Other)
  Sender: FDA-Public Use
  Company Number: US-002147023-NVSC2023US014574

PATIENT
  Sex: Female

DRUGS (1)
  1. ENTRESTO [Suspect]
     Active Substance: SACUBITRIL\VALSARTAN
     Indication: Cardiac failure
     Dosage: 1 DOSAGE FORM, BID (49/51 MG) (TAKING FOR THREE YEARS)
     Route: 048

REACTIONS (9)
  - Dementia [Unknown]
  - Ejection fraction decreased [Unknown]
  - Ear disorder [Unknown]
  - Eye disorder [Unknown]
  - Cerebral disorder [Unknown]
  - Visual impairment [Unknown]
  - Dyspnoea [Unknown]
  - Vertigo [Recovered/Resolved]
  - Dizziness [Recovered/Resolved]
